FAERS Safety Report 8469762-0 (Version None)
Quarter: 2012Q2

REPORT INFORMATION
  Report Type: 
  Country: None (occurrence: None)
  Receive Date: 20120626
  Receipt Date: 20120618
  Transmission Date: 20120825
  Serious: Yes (Other)
  Sender: FDA-Public Use
  Company Number: JP-GILEAD-2011-0045973

PATIENT
  Sex: Female

DRUGS (5)
  1. BIO THREE                          /01068501/ [Concomitant]
     Route: 048
  2. FERROMIA                           /01336601/ [Concomitant]
     Route: 048
  3. LETAIRIS [Suspect]
     Indication: PRODUCT USED FOR UNKNOWN INDICATION
     Dosage: 5MG PER DAY
     Route: 048
     Dates: end: 20111013
  4. FERROMIA                           /00023516/ [Concomitant]
     Route: 048
  5. ALIMENTARY TRACT AND METABOLISM [Concomitant]
     Route: 048

REACTIONS (1)
  - MATERNAL EXPOSURE DURING PREGNANCY [None]
